FAERS Safety Report 5543247-3 (Version None)
Quarter: 2007Q4

REPORT INFORMATION
  Report Type: 
  Country: None (occurrence: None)
  Receive Date: 20071210
  Receipt Date: 20071022
  Transmission Date: 20080405
  Serious: No
  Sender: FDA-Public Use
  Company Number: US-AMGEN-KDL248930

PATIENT
  Sex: Female

DRUGS (4)
  1. ENBREL [Suspect]
     Indication: RHEUMATOID ARTHRITIS
     Route: 058
     Dates: start: 20000401
  2. ZETIA [Concomitant]
  3. AMBIEN [Concomitant]
  4. SYNTHROID [Concomitant]

REACTIONS (2)
  - INFLUENZA LIKE ILLNESS [None]
  - VIRAL INFECTION [None]
